FAERS Safety Report 12382290 (Version 1)
Quarter: 2016Q2

REPORT INFORMATION
  Report Type: Report from Study
  Country: DE (occurrence: DE)
  Receive Date: 20160518
  Receipt Date: 20160518
  Transmission Date: 20160815
  Serious: Yes (Hospitalization)
  Sender: FDA-Public Use
  Company Number: DE-ABBVIE-16P-062-1628484-00

PATIENT
  Age: 5 Month
  Sex: Female
  Weight: 5.27 kg

DRUGS (6)
  1. SYNAGIS [Suspect]
     Active Substance: PALIVIZUMAB
     Route: 030
     Dates: start: 20160115, end: 20160115
  2. SYNAGIS [Suspect]
     Active Substance: PALIVIZUMAB
     Indication: PRODUCT USED FOR UNKNOWN INDICATION
     Route: 030
     Dates: start: 20151029, end: 20151029
  3. SYNAGIS [Suspect]
     Active Substance: PALIVIZUMAB
     Route: 030
     Dates: start: 20151130, end: 20151130
  4. SYNAGIS [Suspect]
     Active Substance: PALIVIZUMAB
     Route: 030
     Dates: start: 20160311, end: 20160311
  5. SYNAGIS [Suspect]
     Active Substance: PALIVIZUMAB
     Route: 030
     Dates: start: 20151222, end: 20151222
  6. SYNAGIS [Suspect]
     Active Substance: PALIVIZUMAB
     Route: 030
     Dates: start: 20160212, end: 20160212

REACTIONS (4)
  - Respiratory tract infection [Recovered/Resolved]
  - Bronchiolitis [Recovered/Resolved]
  - Respiratory syncytial virus infection [Recovered/Resolved]
  - Poor sucking reflex [Recovered/Resolved]

NARRATIVE: CASE EVENT DATE: 20151122
